FAERS Safety Report 10020779 (Version 2)
Quarter: 2014Q1

REPORT INFORMATION
  Report Type: Spontaneous
  Country: IT (occurrence: IT)
  Receive Date: 20140319
  Receipt Date: 20140319
  Transmission Date: 20141002
  Serious: Yes (Hospitalization)
  Sender: FDA-Public Use
  Company Number: IT-RANBAXY-2014RR-78752

PATIENT
  Age: 54 Year
  Sex: Male

DRUGS (2)
  1. PARACETAMOL [Suspect]
     Indication: PRODUCT USED FOR UNKNOWN INDICATION
     Dosage: 1 G, COMPLETE
     Route: 048
     Dates: start: 20140128, end: 20140128
  2. BACTRIM [Suspect]
     Indication: PRODUCT USED FOR UNKNOWN INDICATION
     Dosage: 1 DF COMPLETE
     Route: 048
     Dates: start: 20140128, end: 20140128

REACTIONS (2)
  - Rhinitis [Recovering/Resolving]
  - Conjunctival hyperaemia [Recovering/Resolving]
